FAERS Safety Report 20014212 (Version 1)
Quarter: 2021Q4

REPORT INFORMATION
  Report Type: Report from Study
  Country: CA (occurrence: CA)
  Receive Date: 20211029
  Receipt Date: 20211029
  Transmission Date: 20220303
  Serious: Yes (Other)
  Sender: FDA-Public Use
  Company Number: CA-BRISTOL-MYERS SQUIBB COMPANY-BMS-2021-015894

PATIENT
  Age: 53 Year
  Sex: Female
  Weight: 68 kg

DRUGS (8)
  1. ABATACEPT [Suspect]
     Active Substance: ABATACEPT
     Indication: Rheumatoid arthritis
     Dosage: 750 MILLIGRAM, Q4WK
     Route: 042
     Dates: start: 20110208
  2. COVID-19 VACCINE [Concomitant]
     Indication: COVID-19 immunisation
     Dosage: UNK
     Route: 065
     Dates: start: 20210330
  3. COVID-19 VACCINE [Concomitant]
     Dosage: UNK
     Route: 065
     Dates: start: 20210619
  4. COVID-19 VACCINE [Concomitant]
     Dosage: THIRD DOSE
     Route: 065
     Dates: start: 20210910
  5. DESIREL [Concomitant]
     Indication: Product used for unknown indication
     Dosage: UNK
     Route: 065
  6. DEXILANT [Concomitant]
     Active Substance: DEXLANSOPRAZOLE
     Indication: Product used for unknown indication
     Dosage: UNK
     Route: 065
  7. IMOVANE [Concomitant]
     Active Substance: ZOPICLONE
     Indication: Product used for unknown indication
     Dosage: UNK
     Route: 065
  8. CELECOXIB [Concomitant]
     Active Substance: CELECOXIB
     Indication: Product used for unknown indication
     Dosage: UNK
     Route: 065

REACTIONS (6)
  - Hepatitis B [Unknown]
  - Herpes virus infection [Unknown]
  - Gastrooesophageal reflux disease [Not Recovered/Not Resolved]
  - Sneezing [Unknown]
  - Rhinorrhoea [Unknown]
  - Mouth ulceration [Unknown]

NARRATIVE: CASE EVENT DATE: 20210212
